FAERS Safety Report 5323918-4 (Version None)
Quarter: 2007Q2

REPORT INFORMATION
  Report Type: 
  Country: None (occurrence: None)
  Receive Date: 20070509
  Receipt Date: 20070509
  Transmission Date: 20071010
  Serious: Yes (Life-Threatening)
  Sender: FDA-Public Use
  Company Number: None

PATIENT
  Age: 56 Year
  Sex: Male

DRUGS (1)
  1. PHYTONADIONE [Suspect]
     Dosage: INTRAVENOUS;10.0
     Route: 042
     Dates: start: 20070504, end: 20070504

REACTIONS (2)
  - CHEST PAIN [None]
  - INFUSION RELATED REACTION [None]
